FAERS Safety Report 8305965-3 (Version None)
Quarter: 2012Q2

REPORT INFORMATION
  Report Type: 
  Country: None (occurrence: None)
  Receive Date: 20120423
  Receipt Date: 20120419
  Transmission Date: 20120825
  Serious: Yes (Hospitalization, Other)
  Sender: FDA-Public Use
  Company Number: DE-ABBOTT-11P-062-0870699-00

PATIENT
  Sex: Male
  Weight: 55 kg

DRUGS (2)
  1. HUMIRA [Suspect]
     Route: 058
     Dates: start: 20111007, end: 20120409
  2. HUMIRA [Suspect]
     Indication: CROHN'S DISEASE
     Route: 058
     Dates: start: 20100515, end: 20110810

REACTIONS (7)
  - ILEUS PARALYTIC [None]
  - HYPOKALAEMIA [None]
  - ENTEROCUTANEOUS FISTULA [None]
  - ERYTHEMA [None]
  - ABSCESS [None]
  - GASTRIC ATONY [None]
  - ABSCESS INTESTINAL [None]
